FAERS Safety Report 16084438 (Version 1)
Quarter: 2019Q1

REPORT INFORMATION
  Report Type: Spontaneous
  Country: US (occurrence: US)
  Receive Date: 20190318
  Receipt Date: 20190318
  Transmission Date: 20190418
  Serious: No
  Sender: FDA-Public Use
  Company Number: US-BAYER-2019-052598

PATIENT
  Age: 45 Year
  Sex: Female
  Weight: 82 kg

DRUGS (2)
  1. MIRALAX [Suspect]
     Active Substance: POLYETHYLENE GLYCOL 3350
     Indication: PANCREATITIS
     Dosage: UNK
  2. MIRALAX [Suspect]
     Active Substance: POLYETHYLENE GLYCOL 3350
     Indication: PANCREATITIS
     Dosage: 1 DF, QD
     Route: 048
     Dates: start: 2019

REACTIONS (5)
  - Product taste abnormal [Unknown]
  - Drug effective for unapproved indication [Unknown]
  - Product odour abnormal [None]
  - Poor quality product administered [None]
  - Off label use [Unknown]

NARRATIVE: CASE EVENT DATE: 2019
